FAERS Safety Report 4426292-0 (Version None)
Quarter: 2004Q3

REPORT INFORMATION
  Report Type: 
  Country: None (occurrence: None)
  Receive Date: 20040811
  Receipt Date: 20040727
  Transmission Date: 20050211
  Serious: Yes (Hospitalization, Other)
  Sender: FDA-Public Use
  Company Number: DE_040714022

PATIENT
  Age: 71 Year
  Sex: Male

DRUGS (10)
  1. GEMZAR [Suspect]
     Indication: PANCREATIC CARCINOMA
     Dosage: 1000 MG/M2
     Dates: end: 20040625
  2. METOCLOPRAMIDE HYDROCHLORIDE [Concomitant]
  3. PANTOZOL (PANTOPRAZOLE SODIUM) [Concomitant]
  4. METFORMIN HCL [Concomitant]
  5. TRAMAL LONG (TRAMADOL HYDROCHLORIDE) [Concomitant]
  6. ESIDRIX [Concomitant]
  7. ENALAPRIL MALEATE [Concomitant]
  8. MAGNESIUM (MAGNESIUM ASPARTATE) [Concomitant]
  9. PROSTAGUTT [Concomitant]
  10. VERASEL [Concomitant]

REACTIONS (12)
  - ASTHENIA [None]
  - BLOOD GLUCOSE INCREASED [None]
  - BLOOD PRESSURE INCREASED [None]
  - CIRCULATORY COLLAPSE [None]
  - COLD SWEAT [None]
  - CONFUSIONAL STATE [None]
  - CONVULSION [None]
  - ENURESIS [None]
  - FALL [None]
  - LOSS OF CONSCIOUSNESS [None]
  - MEMORY IMPAIRMENT [None]
  - REFUSAL OF TREATMENT BY PATIENT [None]
